FAERS Safety Report 6177789-7 (Version None)
Quarter: 2009Q2

REPORT INFORMATION
  Report Type: 
  Country: None (occurrence: None)
  Receive Date: 20090504
  Receipt Date: 20090423
  Transmission Date: 20091009
  Serious: Yes (Death, Hospitalization)
  Sender: FDA-Public Use
  Company Number: JP-BAXTER-2009BH007568

PATIENT
  Age: 71 Year
  Sex: Female

DRUGS (7)
  1. ENDOXAN BAXTER [Suspect]
     Indication: BREAST CANCER RECURRENT
     Route: 041
     Dates: start: 20090303, end: 20090324
  2. ENDOXAN BAXTER [Suspect]
     Route: 048
     Dates: start: 20060519, end: 20061010
  3. FLUOROURACIL [Suspect]
     Indication: BREAST CANCER RECURRENT
     Route: 042
     Dates: start: 20090303, end: 20090324
  4. FARMORUBICIN [Suspect]
     Indication: BREAST CANCER RECURRENT
     Route: 042
     Dates: start: 20090303, end: 20090324
  5. XELODA [Suspect]
     Indication: BREAST CANCER RECURRENT
     Route: 048
     Dates: start: 20061031, end: 20090203
  6. METHOTREXATE [Suspect]
     Indication: BREAST CANCER RECURRENT
     Route: 042
     Dates: start: 20060509, end: 20061003
  7. UFT [Suspect]
     Indication: BREAST CANCER RECURRENT
     Route: 048
     Dates: start: 20031010, end: 20060410

REACTIONS (1)
  - INTERSTITIAL LUNG DISEASE [None]
